FAERS Safety Report 9890638 (Version 1)
Quarter: 2014Q1

REPORT INFORMATION
  Report Type: Spontaneous
  Country: US (occurrence: None)
  Receive Date: 20140210
  Receipt Date: 20140210
  Transmission Date: 20141002
  Serious: Yes (Other)
  Sender: FDA-Public Use
  Company Number: None

PATIENT
  Age: 54 Year
  Sex: Female

DRUGS (8)
  1. HUMIRA [Suspect]
     Indication: PSORIATIC ARTHROPATHY
     Route: 058
     Dates: start: 20131229
  2. RESTASIS [Concomitant]
  3. COMBIGAN [Concomitant]
  4. AZOPT [Concomitant]
  5. GABAPENTIN [Concomitant]
  6. VITAMIN D [Concomitant]
  7. KEPPRA [Concomitant]
  8. MULTIVITAMIN [Concomitant]

REACTIONS (2)
  - Rash generalised [None]
  - Skin discolouration [None]
